FAERS Safety Report 17806068 (Version 1)
Quarter: 2020Q2

REPORT INFORMATION
  Report Type: Spontaneous
  Country: ES (occurrence: ES)
  Receive Date: 20200520
  Receipt Date: 20200520
  Transmission Date: 20200714
  Serious: Yes (Hospitalization)
  Sender: FDA-Public Use
  Company Number: ES-ACCORD-182459

PATIENT
  Age: 64 Year
  Sex: Male
  Weight: 67 kg

DRUGS (2)
  1. CISPLATIN. [Interacting]
     Active Substance: CISPLATIN
     Indication: LUNG NEOPLASM MALIGNANT
     Dosage: CYCLES FROM JANUARY 29, 2020, 45 MG IN 500 CC SALINE, START OF THE 4THCYCLE
     Route: 042
     Dates: start: 20200413, end: 20200413
  2. ETOPOSIDE. [Suspect]
     Active Substance: ETOPOSIDE
     Indication: LUNG NEOPLASM MALIGNANT
     Dosage: 180 MG IN 500 CC OF SALINE TO PASS IN ONE HOUR, CYCLES FROM JANUARY 29,2020, 4TH CYCLE
     Route: 042
     Dates: start: 20200413, end: 20200413

REACTIONS (3)
  - Cardio-respiratory arrest [Recovered/Resolved with Sequelae]
  - Drug interaction [Unknown]
  - Acute myocardial infarction [Recovered/Resolved with Sequelae]

NARRATIVE: CASE EVENT DATE: 20200413
